FAERS Safety Report 7385735-3 (Version None)
Quarter: 2011Q1

REPORT INFORMATION
  Report Type: 
  Country: None (occurrence: None)
  Receive Date: 20110331
  Receipt Date: 20110214
  Transmission Date: 20110831
  Serious: Yes (Death, Other)
  Sender: FDA-Public Use
  Company Number: US-BAYER-200912894NA

PATIENT
  Sex: Male
  Weight: 120.64 kg

DRUGS (10)
  1. ASPIRIN [Concomitant]
     Dosage: 81 MG, QD
     Route: 048
  2. COUMADIN [Concomitant]
  3. ALLOPURINOL [Concomitant]
     Dosage: 100 MG, QD
     Route: 048
  4. PLAVIX [Concomitant]
     Dosage: 75 MG, QD
     Route: 048
  5. TOPROL-XL [Concomitant]
     Dosage: 100 MG, QD
     Route: 048
  6. TRASYLOL [Suspect]
     Indication: CORONARY ARTERY BYPASS
     Dosage: UNK
     Route: 042
     Dates: start: 20041108, end: 20041108
  7. ZESTRIL [Concomitant]
     Dosage: 40 MG, QD
     Route: 048
  8. LIPITOR [Concomitant]
     Dosage: 10 MG, QD
     Route: 048
  9. HAEMODIALYTICS AND HAEMOFILTRATES [Concomitant]
     Dosage: UNK
     Dates: start: 20000318
  10. CLONIDINE [Concomitant]
     Dosage: 0.2 MG, BID
     Route: 048

REACTIONS (5)
  - RENAL FAILURE [None]
  - PAIN [None]
  - RENAL FAILURE ACUTE [None]
  - INJURY [None]
  - UNEVALUABLE EVENT [None]
